FAERS Safety Report 7600731-6 (Version None)
Quarter: 2011Q2

REPORT INFORMATION
  Report Type: 
  Country: None (occurrence: None)
  Receive Date: 20110629
  Receipt Date: 20110616
  Transmission Date: 20111010
  Serious: Yes (Hospitalization)
  Sender: FDA-Public Use
  Company Number: 2011MA006578

PATIENT
  Age: 78 Year
  Sex: Female

DRUGS (4)
  1. NITROFUANTOIN [Concomitant]
  2. ATENOLOL [Concomitant]
  3. HYDROCHLOROTHIAZIDE [Suspect]
  4. NIFEDIPINE [Concomitant]

REACTIONS (13)
  - TREMOR [None]
  - BLOOD POTASSIUM DECREASED [None]
  - CYSTITIS [None]
  - VOMITING [None]
  - DIARRHOEA [None]
  - HYPOAESTHESIA [None]
  - OEDEMA PERIPHERAL [None]
  - DELIRIUM [None]
  - DEPRESSED LEVEL OF CONSCIOUSNESS [None]
  - BLOOD URINE PRESENT [None]
  - HYPONATRAEMIA [None]
  - CEREBROVASCULAR ACCIDENT [None]
  - CONFUSIONAL STATE [None]
